FAERS Safety Report 8303760 (Version 5)
Quarter: 2013Q2

REPORT INFORMATION
  Report Type: Spontaneous
  Country: US (occurrence: US)
  Receive Date: 20111220
  Receipt Date: 20130408
  Transmission Date: 20140414
  Serious: No
  Sender: FDA-Public Use
  Company Number: US-ASTRAZENECA-2011SE75766

PATIENT
  Age: 87 Year
  Sex: Female

DRUGS (3)
  1. NEXIUM [Suspect]
     Dosage: ONE IN THE MORNING AND ONE IN THE EVENING
     Route: 048
  2. CRESTOR [Suspect]
     Route: 048
  3. ATACAND [Suspect]
     Route: 048

REACTIONS (6)
  - Malaise [Unknown]
  - Vomiting [Unknown]
  - Herpes zoster [Unknown]
  - Abdominal discomfort [Unknown]
  - Intentional drug misuse [Unknown]
  - Drug dose omission [Unknown]
